FAERS Safety Report 24140734 (Version 1)
Quarter: 2024Q3

REPORT INFORMATION
  Report Type: Spontaneous
  Country: CA (occurrence: CA)
  Receive Date: 20240726
  Receipt Date: 20240726
  Transmission Date: 20241017
  Serious: Yes (Life-Threatening, Disabling, Other)
  Sender: BAXTER
  Company Number: CA-BAXTER-2024BAX022245

PATIENT
  Age: 44 Year
  Sex: Female
  Weight: 97 kg

DRUGS (81)
  1. ACETAMINOPHEN [Suspect]
     Active Substance: ACETAMINOPHEN
     Indication: Product used for unknown indication
     Dosage: (DOSAGE FORM: NOT SPECIFIED) AT AN UNSPECIFIED DOSE AND FREQUENCY
     Route: 065
  2. ACETAMINOPHEN\OXYCODONE HYDROCHLORIDE [Suspect]
     Active Substance: ACETAMINOPHEN\OXYCODONE HYDROCHLORIDE
     Indication: Product used for unknown indication
     Dosage: AT AN UNSPECIFIED DOSE AND FREQUENCY
     Route: 065
  3. ACTEMRA [Suspect]
     Active Substance: TOCILIZUMAB
     Indication: Rheumatoid arthritis
     Dosage: 728.0 MILLIGRAM 1 EVERY 1 MONTHS
     Route: 042
  4. ACTEMRA [Suspect]
     Active Substance: TOCILIZUMAB
     Dosage: 752.8 MILLIGRAM 1 EVERY 1 MONTHS
     Route: 042
  5. ACTEMRA [Suspect]
     Active Substance: TOCILIZUMAB
     Dosage: AT AN UNSPECIFIED DOSE AND FREQUENCY
     Route: 042
  6. ACTEMRA [Suspect]
     Active Substance: TOCILIZUMAB
     Dosage: 728.0 MILLIGRAM 1 EVERY 4 WEEKS
     Route: 042
  7. ACTEMRA [Suspect]
     Active Substance: TOCILIZUMAB
     Indication: Rheumatoid arthritis
     Dosage: (DOSAGE FORM: NOT SPECIFIED) 752.8 MILLIGRAM 1 EVERY 1 MONTHS
     Route: 042
  8. ACETAMINOPHEN [Suspect]
     Active Substance: ACETAMINOPHEN
     Indication: Product used for unknown indication
     Dosage: AT AN UNSPECIFIED DOSE AND FREQUENCY
     Route: 065
  9. PREDNISONE [Suspect]
     Active Substance: PREDNISONE
     Indication: Product used for unknown indication
     Dosage: AT AN UNSPECIFIED DOSE AND FREQUENCY
     Route: 048
  10. CHLORAPREP [Suspect]
     Active Substance: CHLORHEXIDINE GLUCONATE\ISOPROPYL ALCOHOL
     Indication: Product used for unknown indication
     Dosage: (DOSAGE FORM: SOLUTION) AT AN UNSPECIFIED DOSE AND FREQUENCY
     Route: 065
  11. CHLORHEXIDINE [Suspect]
     Active Substance: CHLORHEXIDINE
     Indication: Product used for unknown indication
     Dosage: AT AN UNSPECIFIED DOSE AND FREQUENCY
     Route: 065
  12. CIMZIA [Suspect]
     Active Substance: CERTOLIZUMAB PEGOL
     Indication: Product used for unknown indication
     Dosage: UNK
     Route: 058
  13. DESOXIMETASONE [Suspect]
     Active Substance: DESOXIMETASONE
     Indication: Rheumatoid arthritis
     Dosage: AT AN UNSPECIFIED DOSE AND FREQUENCY
     Route: 042
  14. DESOXIMETASONE [Suspect]
     Active Substance: DESOXIMETASONE
     Dosage: (DOSAGE FORM: NOT SPECIFIED) AT AN UNSPECIFIED DOSE AND FREQUENCY
     Route: 048
  15. DICLOFENAC [Suspect]
     Active Substance: DICLOFENAC
     Indication: Product used for unknown indication
     Dosage: AT AN UNSPECIFIED DOSE AND FREQUENCY
     Route: 065
  16. DICLOFENAC [Suspect]
     Active Substance: DICLOFENAC
     Dosage: (DOSAGE FORM: NOT SPECIFIED) AT AN UNSPECIFIED DOSE AND FREQUENCY
     Route: 047
  17. ENBREL [Suspect]
     Active Substance: BENZYL ALCOHOL\ETANERCEPT
     Indication: Rheumatoid arthritis
     Dosage: AT AN UNSPECIFIED DOSE AND FREQUENCY
     Route: 058
  18. ENBREL [Suspect]
     Active Substance: BENZYL ALCOHOL\ETANERCEPT
     Dosage: AT AN UNSPECIFIED DOSE AND FREQUENCY
     Route: 065
  19. FOLIC ACID [Suspect]
     Active Substance: FOLIC ACID
     Indication: Rheumatoid arthritis
     Dosage: 5.0 MILLIGRAM AT AN UNSPECIFIED FREQUENCY
     Route: 065
  20. FOLIC ACID [Suspect]
     Active Substance: FOLIC ACID
     Dosage: (DOSAGE FORM: NOT SPECIFIED) 1.0 MILLIGRAM AT AN UNSPECIFIED FREQUENCY
     Route: 065
  21. FOSAMAX [Suspect]
     Active Substance: ALENDRONATE SODIUM
     Indication: Rheumatoid arthritis
     Dosage: 1.0 MILLIGRAM AT AN UNSPECIFIED FREQUENCY
     Route: 048
  22. HUMIRA [Suspect]
     Active Substance: ADALIMUMAB
     Indication: Rheumatoid arthritis
     Dosage: (DOSAGE FORM: SOLUTION SUBCUTANEOUS) 1.0 MILLIGRAM AT AN UNSPECIFIED FREQUENCY
     Route: 058
  23. HUMIRA [Suspect]
     Active Substance: ADALIMUMAB
     Dosage: 40.0 MILLIGRAM AT AN UNSPECIFIED FREQUENCY
     Route: 058
  24. HYDROXYCHLOROQUINE [Suspect]
     Active Substance: HYDROXYCHLOROQUINE
     Indication: Rheumatoid arthritis
     Dosage: 400.0 MILLIGRAM AT AN UNSPECIFIED FREQUENCY
     Route: 048
  25. HYDROXYCHLOROQUINE [Suspect]
     Active Substance: HYDROXYCHLOROQUINE
     Dosage: AT AN UNSPECIFIED DOSE AND FREQUENCY
     Route: 065
  26. HYDROXYCHLOROQUINE SULFATE [Suspect]
     Active Substance: HYDROXYCHLOROQUINE SULFATE
     Indication: Product used for unknown indication
     Dosage: AT AN UNSPECIFIED DOSE AND FREQUENCY
     Route: 048
  27. ISOPROPYL ALCOHOL [Suspect]
     Active Substance: ISOPROPYL ALCOHOL
     Indication: Product used for unknown indication
     Dosage: (DOSAGE FORM: LIQUID TOPICAL) AT AN UNSPECIFIED DOSE AND FREQUENCY
     Route: 065
  28. KEVZARA [Suspect]
     Active Substance: SARILUMAB
     Indication: Rheumatoid arthritis
     Dosage: AT AN UNSPECIFIED DOSE AND FREQUENCY
     Route: 065
  29. LEFLUNOMIDE [Suspect]
     Active Substance: LEFLUNOMIDE
     Indication: Product used for unknown indication
     Dosage: (DOSAGE FORM: NOT SPECIFIED) AT AN UNSPECIFIED DOSE AND FREQUENCY
     Route: 065
  30. METHOTREXATE [Suspect]
     Active Substance: METHOTREXATE
     Indication: Rheumatoid arthritis
     Dosage: AT AN UNSPECIFIED DOSE AND FREQUENCY
     Route: 065
  31. METHOTREXATE [Suspect]
     Active Substance: METHOTREXATE
     Dosage: (DOSAGE FORM: NOT SPECIFIED) AT AN UNSPECIFIED DOSE AND FREQUENCY
     Route: 065
  32. ALFACALCIDOL [Suspect]
     Active Substance: ALFACALCIDOL
     Indication: Product used for unknown indication
     Dosage: (DOSAGE FORM: NOT SPECIFIED) AT AN UNSPECIFIED DOSE AND FREQUENCY
     Route: 065
  33. OXYCODONE [Suspect]
     Active Substance: OXYCODONE
     Indication: Product used for unknown indication
     Dosage: (DOSAGE FORM: NOT SPECIFIED) AT AN UNSPECIFIED DOSE AND FREQUENCY
     Route: 065
  34. OXYCODONE [Suspect]
     Active Substance: OXYCODONE
     Dosage: AT AN UNSPECIFIED DOSE AND FREQUENCY
     Route: 065
  35. OXYCODONE TEREPHTHALATE [Suspect]
     Active Substance: OXYCODONE TEREPHTHALATE
     Indication: Product used for unknown indication
     Dosage: (DOSAGE FORM: NOT SPECIFIED) AT AN UNSPECIFIED DOSE AND FREQUENCY
     Route: 065
  36. PERCOCET [Suspect]
     Active Substance: ACETAMINOPHEN\OXYCODONE HYDROCHLORIDE
     Indication: Rheumatoid arthritis
     Dosage: AT AN UNSPECIFIED DOSE AND FREQUENCY
     Route: 042
  37. PERIOGARD [Suspect]
     Active Substance: CHLORHEXIDINE GLUCONATE
     Indication: Product used for unknown indication
     Dosage: AT AN UNSPECIFIED DOSE AND FREQUENCY
     Route: 065
  38. PSEUDOEPHEDRINE [Suspect]
     Active Substance: PSEUDOEPHEDRINE
     Indication: Product used for unknown indication
     Dosage: (DOSAGE FORM: NOT SPECIFIED) 10.0 MILLIGRAM AT AN UNSPECIFIED FREQUENCY
     Route: 065
  39. REMICADE [Suspect]
     Active Substance: INFLIXIMAB
     Indication: Rheumatoid arthritis
     Dosage: (DOSAGE FORM: POWDER FOR SOLUTION INTRAVENOUS) AT AN UNSPECIFIED DOSE AND FREQUENCY
     Route: 065
  40. REMICADE [Suspect]
     Active Substance: INFLIXIMAB
     Indication: Psoriatic arthropathy
  41. REMICADE [Suspect]
     Active Substance: INFLIXIMAB
     Indication: Crohn^s disease
  42. REMICADE [Suspect]
     Active Substance: INFLIXIMAB
     Indication: Ankylosing spondylitis
  43. ORENCIA [Suspect]
     Active Substance: ABATACEPT
     Indication: Rheumatoid arthritis
     Dosage: AT AN UNSPECIFIED DOSE AND FREQUENCY
     Route: 042
  44. ORENCIA [Suspect]
     Active Substance: ABATACEPT
     Dosage: 125.0 MILLIGRAM 1 EVERY 1 WEEKS
     Route: 058
  45. RITUXIMAB [Suspect]
     Active Substance: RITUXIMAB
     Indication: Rheumatoid arthritis
     Dosage: AT AN UNSPECIFIED DOSE AND FREQUENCY
     Route: 042
  46. SIMPONI [Suspect]
     Active Substance: GOLIMUMAB
     Indication: Product used for unknown indication
     Dosage: (DOSAGE FORM: SOLUTION SUBCUTANEOUS) AT AN UNSPECIFIED DOSE AND FREQUENCY
     Route: 058
  47. STELARA [Suspect]
     Active Substance: USTEKINUMAB
     Indication: Rheumatoid arthritis
     Dosage: (DOSAGE FORM: SOLUTION SUBCUTANEOUS) AT AN UNSPECIFIED DOSE AND FREQUENCY
     Route: 058
  48. SULFAMETHOXAZOLE [Suspect]
     Active Substance: SULFAMETHOXAZOLE
     Indication: Product used for unknown indication
     Dosage: AT AN UNSPECIFIED DOSE AND FREQUENCY
     Route: 065
  49. SULFAMETHOXAZOLE\TRIMETHOPRIM [Suspect]
     Active Substance: SULFAMETHOXAZOLE\TRIMETHOPRIM
     Indication: Product used for unknown indication
     Dosage: (DOSAGE FORM: NOT SPECIFIED) AT AN UNSPECIFIED DOSE AND FREQUENCY
     Route: 065
  50. SULFASALAZINE [Suspect]
     Active Substance: SULFASALAZINE
     Indication: Rheumatoid arthritis
     Dosage: 500.0 MILLIGRAM AT AN UNSPECIFIED FREQUENCY
     Route: 048
  51. SULFASALAZINE [Suspect]
     Active Substance: SULFASALAZINE
     Dosage: 1.0 GRAM AT AN UNSPECIFIED FREQUENCY
     Route: 048
  52. SULFASALAZINE [Suspect]
     Active Substance: SULFASALAZINE
     Dosage: (DOSAGE FORM: NOT SPECIFIED) 2000.0 MILLIGRAM AT AN UNSPECIFIED FREQUENCY
     Route: 048
  53. SULFASALAZINE [Suspect]
     Active Substance: SULFASALAZINE
     Dosage: 2000.0 MILLIGRAM AT AN UNSPECIFIED FREQUENCY
     Route: 048
  54. SULFASALAZINE [Suspect]
     Active Substance: SULFASALAZINE
     Dosage: 1000.0 MILLIGRAM AT AN UNSPECIFIED FREQUENCY
     Route: 048
  55. SULFASALAZINE [Suspect]
     Active Substance: SULFASALAZINE
     Dosage: 1000.0 MILLIGRAM AT AN UNSPECIFIED FREQUENCY
     Route: 065
  56. TOPICORT [Suspect]
     Active Substance: DESOXIMETASONE
     Indication: Rheumatoid arthritis
     Dosage: (DOSAGE FORM: NOT SPECIFIED) AT AN UNSPECIFIED DOSE AND FREQUENCY
     Route: 058
  57. XELJANZ [Suspect]
     Active Substance: TOFACITINIB CITRATE
     Indication: Rheumatoid arthritis
     Dosage: (DOSAGE FORM: NOT SPECIFIED) 10.0 MILLIGRAM AT AN UNSPECIFIED FREQUENCY
     Route: 065
  58. ZOPICLONE [Concomitant]
     Active Substance: ZOPICLONE
     Indication: Product used for unknown indication
     Dosage: AT AN UNSPECIFIED DOSE AND FREQUENCY
     Route: 065
  59. TYLENOL [Concomitant]
     Active Substance: ACETAMINOPHEN
     Indication: Product used for unknown indication
     Dosage: (DOSAGE FORM: NOT SPECIFIED) AT AN UNSPECIFIED DOSE AND FREQUENCY
     Route: 065
  60. TYLENOL [Concomitant]
     Active Substance: ACETAMINOPHEN
     Dosage: AT AN UNSPECIFIED DOSE AND FREQUENCY
     Route: 065
  61. TYLENOL WITH CODEINE [Concomitant]
     Active Substance: ACETAMINOPHEN\CODEINE PHOSPHATE
     Indication: Product used for unknown indication
     Dosage: AT AN UNSPECIFIED FREQUENCY (DOSAGE FORM: NOT SPECIFIED)
     Route: 065
  62. TYLENOL WITH CODEINE [Concomitant]
     Active Substance: ACETAMINOPHEN\CODEINE PHOSPHATE
     Dosage: AT AN UNSPECIFIED FREQUENCY
     Route: 065
  63. SULFASALAZINE [Concomitant]
     Active Substance: SULFASALAZINE
     Indication: Product used for unknown indication
     Dosage: (DOSAGE FORM: NOT SPECIFIED) AT AN UNSPECIFIED DOSE AND FREQUENCY
     Route: 065
  64. SULFASALAZINE [Concomitant]
     Active Substance: SULFASALAZINE
     Dosage: AT AN UNSPECIFIED DOSE AND FREQUENCY
     Route: 065
  65. Reactine [Concomitant]
     Indication: Product used for unknown indication
     Dosage: (DOSAGE FORM: NOT SPECIFIED) AT AN UNSPECIFIED DOSE AND FREQUENCY
     Route: 065
  66. Reactine [Concomitant]
     Dosage: AT AN UNSPECIFIED DOSE AND FREQUENCY
     Route: 065
  67. PREDNISONE [Concomitant]
     Active Substance: PREDNISONE
     Indication: Product used for unknown indication
     Dosage: (DOSAGE FORM: NOT SPECIFIED) AT AN UNSPECIFIED DOSE AND FREQUENCY
     Route: 065
  68. PREDNISONE [Concomitant]
     Active Substance: PREDNISONE
     Dosage: AT AN UNSPECIFIED DOSE AND FREQUENCY
     Route: 065
  69. PLAQUENIL [Concomitant]
     Active Substance: HYDROXYCHLOROQUINE SULFATE
     Indication: Product used for unknown indication
     Dosage: AT AN UNSPECIFIED DOSE AND FREQUENCY
     Route: 065
  70. PANTOPRAZOLE [Concomitant]
     Active Substance: PANTOPRAZOLE
     Indication: Product used for unknown indication
     Dosage: AT AN UNSPECIFIED DOSE AND FREQUENCY
     Route: 065
  71. PANTOPRAZOLE SODIUM [Concomitant]
     Active Substance: PANTOPRAZOLE SODIUM
     Indication: Product used for unknown indication
     Dosage: AT AN UNSPECIFIED DOSE AND FREQUENCY
     Route: 065
  72. PANTOPRAZOLE SODIUM [Concomitant]
     Active Substance: PANTOPRAZOLE SODIUM
     Indication: Product used for unknown indication
     Dosage: AT AN UNSPECIFIED DOSE AND FREQUENCY
     Route: 065
  73. MARVELON [Concomitant]
     Active Substance: DESOGESTREL\ETHINYL ESTRADIOL
     Indication: Product used for unknown indication
     Dosage: AT AN UNSPECIFIED DOSE AND FREQUENCY
     Route: 065
  74. DESOGESTREL\ETHINYL ESTRADIOL [Concomitant]
     Active Substance: DESOGESTREL\ETHINYL ESTRADIOL
     Indication: Product used for unknown indication
     Dosage: AT AN UNSPECIFIED DOSE AND FREQUENCY
     Route: 065
  75. IBUPROFEN [Concomitant]
     Active Substance: IBUPROFEN
     Indication: Product used for unknown indication
     Dosage: (DOSAGE FORM: NOT SPECIFIED) AT AN UNSPECIFIED DOSE AND FREQUENCY
     Route: 065
  76. IBUPROFEN [Concomitant]
     Active Substance: IBUPROFEN
     Dosage: AT AN UNSPECIFIED DOSE AND FREQUENCY
     Route: 065
  77. CETIRIZINE [Concomitant]
     Active Substance: CETIRIZINE HYDROCHLORIDE
     Indication: Product used for unknown indication
     Dosage: AT AN UNSPECIFIED DOSE AND FREQUENCY
     Route: 065
  78. ARAVA [Concomitant]
     Active Substance: LEFLUNOMIDE
     Indication: Product used for unknown indication
     Dosage: AT AN UNSPECIFIED DOSE AND FREQUENCY
     Route: 065
  79. ACETAMINOPHEN [Concomitant]
     Active Substance: ACETAMINOPHEN
     Indication: Product used for unknown indication
     Route: 065
  80. ACETAMINOPHEN\CODEINE PHOSPHATE [Concomitant]
     Active Substance: ACETAMINOPHEN\CODEINE PHOSPHATE
     Indication: Product used for unknown indication
     Dosage: UNK
     Route: 065
  81. ACETAMINOPHEN\CODEINE PHOSPHATE [Concomitant]
     Active Substance: ACETAMINOPHEN\CODEINE PHOSPHATE
     Dosage: (DOSAGE FORM: INJECTION) AT AN UNSPECIFIED DOSE AND FREQUENCY
     Route: 065

REACTIONS (61)
  - Abdominal discomfort [Not Recovered/Not Resolved]
  - Abdominal pain upper [Not Recovered/Not Resolved]
  - Alopecia [Not Recovered/Not Resolved]
  - Anti-cyclic citrullinated peptide antibody positive [Not Recovered/Not Resolved]
  - Arthralgia [Not Recovered/Not Resolved]
  - Arthropathy [Not Recovered/Not Resolved]
  - Asthenia [Not Recovered/Not Resolved]
  - Back pain [Not Recovered/Not Resolved]
  - Blister [Not Recovered/Not Resolved]
  - Confusional state [Not Recovered/Not Resolved]
  - Contraindicated product administered [Not Recovered/Not Resolved]
  - Contusion [Not Recovered/Not Resolved]
  - Discomfort [Not Recovered/Not Resolved]
  - Drug ineffective [Not Recovered/Not Resolved]
  - Drug intolerance [Not Recovered/Not Resolved]
  - Duodenal ulcer perforation [Not Recovered/Not Resolved]
  - Dyspnoea [Not Recovered/Not Resolved]
  - Folliculitis [Not Recovered/Not Resolved]
  - Gastrointestinal disorder [Not Recovered/Not Resolved]
  - Glossodynia [Not Recovered/Not Resolved]
  - Hand deformity [Not Recovered/Not Resolved]
  - Headache [Not Recovered/Not Resolved]
  - Helicobacter infection [Not Recovered/Not Resolved]
  - Hepatic enzyme increased [Not Recovered/Not Resolved]
  - Ill-defined disorder [Not Recovered/Not Resolved]
  - Impaired healing [Not Recovered/Not Resolved]
  - Infection [Not Recovered/Not Resolved]
  - Intentional product use issue [Not Recovered/Not Resolved]
  - Irritable bowel syndrome [Not Recovered/Not Resolved]
  - Joint swelling [Not Recovered/Not Resolved]
  - Lower respiratory tract infection [Not Recovered/Not Resolved]
  - Muscle injury [Not Recovered/Not Resolved]
  - Nasopharyngitis [Not Recovered/Not Resolved]
  - Night sweats [Not Recovered/Not Resolved]
  - Off label use [Not Recovered/Not Resolved]
  - Pain [Not Recovered/Not Resolved]
  - Pemphigus [Not Recovered/Not Resolved]
  - Pericarditis [Not Recovered/Not Resolved]
  - Peripheral swelling [Not Recovered/Not Resolved]
  - Product use issue [Not Recovered/Not Resolved]
  - Respiratory disorder [Not Recovered/Not Resolved]
  - Rheumatoid arthritis [Not Recovered/Not Resolved]
  - Sinusitis [Not Recovered/Not Resolved]
  - Sleep disorder due to general medical condition, insomnia type [Not Recovered/Not Resolved]
  - Stomatitis [Not Recovered/Not Resolved]
  - Swelling [Not Recovered/Not Resolved]
  - Synovitis [Not Recovered/Not Resolved]
  - Systemic lupus erythematosus [Not Recovered/Not Resolved]
  - Therapeutic product effect decreased [Not Recovered/Not Resolved]
  - Treatment failure [Not Recovered/Not Resolved]
  - Weight increased [Not Recovered/Not Resolved]
  - Wound [Not Recovered/Not Resolved]
  - Infusion related reaction [Not Recovered/Not Resolved]
  - Pyrexia [Not Recovered/Not Resolved]
  - Vomiting [Not Recovered/Not Resolved]
  - Fatigue [Not Recovered/Not Resolved]
  - Pruritus [Not Recovered/Not Resolved]
  - Rash [Not Recovered/Not Resolved]
  - Hypersensitivity [Not Recovered/Not Resolved]
  - Urticaria [Not Recovered/Not Resolved]
  - Maternal exposure during pregnancy [Not Recovered/Not Resolved]
